FAERS Safety Report 13014411 (Version 1)
Quarter: 2016Q4

REPORT INFORMATION
  Report Type: Spontaneous
  Country: None (occurrence: SE)
  Receive Date: 20161209
  Receipt Date: 20161209
  Transmission Date: 20170207
  Serious: Yes (Life-Threatening)
  Sender: FDA-Public Use
  Company Number: SE-MEDAC PHARMA, INC.-1060632

PATIENT
  Age: 62 Year
  Sex: Female

DRUGS (8)
  1. METOJECT PEN [Suspect]
     Active Substance: METHOTREXATE
     Indication: RHEUMATOID ARTHRITIS
     Route: 058
     Dates: start: 20070403, end: 20160127
  2. HUMULIN L [Concomitant]
     Active Substance: INSULIN HUMAN
  3. METFORMIN [Concomitant]
     Active Substance: METFORMIN HYDROCHLORIDE
  4. LOSARTAN. [Concomitant]
     Active Substance: LOSARTAN
  5. ENBREL [Suspect]
     Active Substance: ETANERCEPT
     Route: 058
     Dates: start: 20150923, end: 20160127
  6. ATORVASTATIN CALCIUM. [Concomitant]
     Active Substance: ATORVASTATIN CALCIUM
  7. ACETAMINOPHEN. [Concomitant]
     Active Substance: ACETAMINOPHEN
  8. OMEPRAZOLE. [Concomitant]
     Active Substance: OMEPRAZOLE

REACTIONS (2)
  - Sepsis [Recovered/Resolved with Sequelae]
  - Colon cancer [Recovered/Resolved with Sequelae]

NARRATIVE: CASE EVENT DATE: 20160217
